FAERS Safety Report 21947930 (Version 7)
Quarter: 2024Q2

REPORT INFORMATION
  Report Type: Report from Study
  Country: US (occurrence: US)
  Receive Date: 20230203
  Receipt Date: 20240620
  Transmission Date: 20240716
  Serious: Yes (Hospitalization)
  Sender: FDA-Public Use
  Company Number: US-GBT-019721

PATIENT
  Age: 23 Year
  Sex: Male

DRUGS (16)
  1. VOXELOTOR [Suspect]
     Active Substance: VOXELOTOR
     Indication: Sickle cell disease
     Dosage: 1500 MG, 1X/DAY, OXBRYTA
     Dates: start: 20220408, end: 202301
  2. VOXELOTOR [Suspect]
     Active Substance: VOXELOTOR
     Indication: Anaemia
     Dosage: 1500 MG, 1X/DAY, OXBRYTA
     Route: 048
     Dates: start: 20230127, end: 20230207
  3. VOXELOTOR [Suspect]
     Active Substance: VOXELOTOR
     Indication: Sickle cell anaemia with crisis
  4. ADAKVEO [Concomitant]
     Active Substance: CRIZANLIZUMAB-TMCA
     Indication: Sickle cell disease
     Dosage: 5 MG/KG, IN NACL 0.9% 100 ML INFUSION
     Route: 042
     Dates: start: 20211217
  5. ROXICODONE [Concomitant]
     Active Substance: OXYCODONE HYDROCHLORIDE
     Indication: Sickle cell disease
     Dosage: 15 MG, IR TABLETS
     Route: 048
     Dates: start: 20200923
  6. MS CONTIN [Concomitant]
     Active Substance: MORPHINE SULFATE
     Indication: Sickle cell disease
     Dosage: 60 MG, 2X/DAY, 60 MG 12 EXTENDED-RELEASE TABLET
     Route: 048
     Dates: start: 20220531
  7. MOTRIN [Concomitant]
     Active Substance: IBUPROFEN
     Indication: Sickle cell disease
     Dosage: 600 MG
     Route: 048
  8. AMOXIL [Concomitant]
     Active Substance: AMOXICILLIN
     Indication: Sickle cell disease
     Dosage: 250 MG, 2X/DAY
     Route: 048
     Dates: start: 20190322
  9. ASPERCREME WITH LIDOCAINE [Concomitant]
     Active Substance: LIDOCAINE
     Indication: Sickle cell disease
     Dosage: 1 DF, 4%
     Route: 062
     Dates: start: 20220821
  10. NEURONTIN [Concomitant]
     Active Substance: GABAPENTIN
     Indication: Sickle cell disease
     Dosage: 600 MG, 1X/DAY
     Route: 048
     Dates: start: 20220809
  11. PEPCID [Concomitant]
     Active Substance: FAMOTIDINE
     Indication: Sickle cell disease
     Dosage: 20 MG, 2X/DAY
     Route: 048
     Dates: start: 20220728
  12. VITAMIN D3 [Concomitant]
     Active Substance: CHOLECALCIFEROL
     Indication: Product used for unknown indication
     Dosage: 2 DF, 1X/DAY, 25 MCG (1,000 UNIT)
     Route: 048
     Dates: start: 20220708
  13. HYDREA [Concomitant]
     Active Substance: HYDROXYUREA
     Indication: Sickle cell disease
     Dosage: ALTERNATE 1500/2000 MG, 500 MG CAPSULE
     Route: 048
     Dates: start: 20160719
  14. PRINIVIL [Concomitant]
     Active Substance: LISINOPRIL
     Indication: Product used for unknown indication
     Dosage: 10 MG, 1X/DAY
     Route: 048
     Dates: start: 20220401
  15. FOLVITE [Concomitant]
     Active Substance: FOLIC ACID
     Indication: Sickle cell disease
     Dosage: 1 MG, 1X/DAY
     Route: 048
     Dates: start: 20121214
  16. TYLENOL [Concomitant]
     Active Substance: ACETAMINOPHEN
     Indication: Sickle cell disease
     Dosage: 650 MG
     Route: 048
     Dates: start: 20211217

REACTIONS (3)
  - Acute chest syndrome [Recovered/Resolved]
  - Pain [Recovered/Resolved]
  - Deep vein thrombosis [Recovered/Resolved]

NARRATIVE: CASE EVENT DATE: 20230124
